FAERS Safety Report 20583155 (Version 1)
Quarter: 2022Q1

REPORT INFORMATION
  Report Type: Spontaneous
  Country: DK (occurrence: DK)
  Receive Date: 20220311
  Receipt Date: 20220311
  Transmission Date: 20220424
  Serious: Yes (Other)
  Sender: FDA-Public Use
  Company Number: DK-PFIZER INC-202200377068

PATIENT
  Age: 28 Year
  Sex: Male

DRUGS (2)
  1. INFLIXIMAB [Suspect]
     Active Substance: INFLIXIMAB
     Indication: Crohn^s disease
     Dosage: 580 MG (THE 11TH DOSE WAS GIVEN ON 17 FEB 2022. DOSAGE INTERVAL UNKNOWN. STRENGTH: 600 MG)
     Route: 042
     Dates: start: 20190916
  2. INFLIXIMAB [Suspect]
     Active Substance: INFLIXIMAB
     Dosage: 580 MG (DOSAGE INTERVAL UNKNOWN. STRENGTH: 600 MG)
     Route: 042
     Dates: start: 20210217

REACTIONS (5)
  - Pharyngeal swelling [Recovered/Resolved]
  - Cold sweat [Recovered/Resolved]
  - Dyspnoea [Recovered/Resolved]
  - Erythema [Recovered/Resolved]
  - Anaphylactic reaction [Recovered/Resolved]

NARRATIVE: CASE EVENT DATE: 20210217
